FAERS Safety Report 17650354 (Version 1)
Quarter: 2020Q2

REPORT INFORMATION
  Report Type: Spontaneous
  Country: US (occurrence: US)
  Receive Date: 20200409
  Receipt Date: 20200409
  Transmission Date: 20200713
  Serious: Yes (Other)
  Sender: FDA-Public Use
  Company Number: US-PFIZER INC-2019164185

PATIENT
  Age: 29 Year
  Sex: Female

DRUGS (3)
  1. PRISTIQ EXTENDED-RELEASE [Suspect]
     Active Substance: DESVENLAFAXINE SUCCINATE
     Dosage: 0.25 DF, UNK (TAKING QUARTERS)
  2. PRISTIQ EXTENDED-RELEASE [Suspect]
     Active Substance: DESVENLAFAXINE SUCCINATE
     Dosage: 25 MG, 1X/DAY(HALF TO ONE TABLET ,EVERY BEDTIME)
     Route: 048
  3. PRISTIQ EXTENDED-RELEASE [Suspect]
     Active Substance: DESVENLAFAXINE SUCCINATE
     Indication: CEREBROVASCULAR ACCIDENT
     Dosage: UNK
     Dates: start: 2007

REACTIONS (5)
  - Road traffic accident [Recovered/Resolved]
  - Uterine leiomyoma [Unknown]
  - Product prescribing error [Unknown]
  - Off label use [Unknown]
  - Product use in unapproved indication [Unknown]

NARRATIVE: CASE EVENT DATE: 2007
